FAERS Safety Report 20673817 (Version 2)
Quarter: 2022Q2

REPORT INFORMATION
  Report Type: Report from Study
  Country: US (occurrence: US)
  Receive Date: 20220405
  Receipt Date: 20220413
  Transmission Date: 20220721
  Serious: Yes (Hospitalization, Other)
  Sender: FDA-Public Use
  Company Number: US-SANOFI-01039541

PATIENT
  Age: 63 Year
  Sex: Female

DRUGS (1)
  1. TERIFLUNOMIDE [Suspect]
     Active Substance: TERIFLUNOMIDE
     Indication: Multiple sclerosis
     Dosage: 14 MG, QD
     Route: 048
     Dates: start: 20200316

REACTIONS (7)
  - Status epilepticus [Unknown]
  - Seizure [Recovered/Resolved]
  - Endotracheal intubation [Recovered/Resolved]
  - Cardiomyopathy [Unknown]
  - Confusional state [Unknown]
  - Hypotension [Unknown]
  - Memory impairment [Recovering/Resolving]

NARRATIVE: CASE EVENT DATE: 20220101
